FAERS Safety Report 10491728 (Version 1)
Quarter: 2014Q4

REPORT INFORMATION
  Report Type: Spontaneous
  Country: US (occurrence: US)
  Receive Date: 20141002
  Receipt Date: 20141002
  Transmission Date: 20150528
  Serious: No
  Sender: FDA-Public Use
  Company Number: US-GLAXOSMITHKLINE-A1058684A

PATIENT
  Age: 70 Year
  Sex: Male

DRUGS (18)
  1. AMLODIPINE [Concomitant]
     Active Substance: AMLODIPINE BESYLATE
  2. POTASSIUM CHLORIDE. [Concomitant]
     Active Substance: POTASSIUM CHLORIDE
  3. HYDROXYCHLOROQUINE [Concomitant]
     Active Substance: HYDROXYCHLOROQUINE
  4. LASIX [Concomitant]
     Active Substance: FUROSEMIDE
  5. BYSTOLIC [Concomitant]
     Active Substance: NEBIVOLOL HYDROCHLORIDE
  6. METOLAZONE. [Concomitant]
     Active Substance: METOLAZONE
  7. ECOTRIN [Concomitant]
     Active Substance: ASPIRIN
  8. OXYCODONE-ACETAMINOPHEN [Concomitant]
     Active Substance: ACETAMINOPHEN\OXYCODONE HYDROCHLORIDE
  9. VITAMIN B1 [Concomitant]
     Active Substance: THIAMINE HYDROCHLORIDE
  10. B12 VITAMIN [Concomitant]
  11. LOSARTAN [Concomitant]
     Active Substance: LOSARTAN
  12. DOXAZOSIN [Concomitant]
     Active Substance: DOXAZOSIN\DOXAZOSIN MESYLATE
  13. ATORVASTATIN [Concomitant]
     Active Substance: ATORVASTATIN
  14. MONTELUKAST [Concomitant]
     Active Substance: MONTELUKAST SODIUM
  15. ADVAIR HFA [Suspect]
     Active Substance: FLUTICASONE PROPIONATE\SALMETEROL XINAFOATE
     Indication: ASTHMA
     Dosage: 1PUFF TWICE PER DAY
     Route: 055
     Dates: start: 20140128
  16. BENZONATATE. [Concomitant]
     Active Substance: BENZONATATE
  17. LOVAZA [Concomitant]
     Active Substance: OMEGA-3-ACID ETHYL ESTERS
  18. LYRICA [Concomitant]
     Active Substance: PREGABALIN

REACTIONS (2)
  - Drug ineffective [Unknown]
  - Dyspnoea [Unknown]

NARRATIVE: CASE EVENT DATE: 20140128
